FAERS Safety Report 5384646-2 (Version None)
Quarter: 2007Q3

REPORT INFORMATION
  Report Type: 
  Country: None (occurrence: None)
  Receive Date: 20070711
  Receipt Date: 20070704
  Transmission Date: 20080115
  Serious: Yes (Other)
  Sender: FDA-Public Use
  Company Number: JP-BOEHRINGER INGELHEIM PHARMACEUTICALS, INC.-2007-BP-16749NB

PATIENT
  Age: 46 Year
  Sex: Female

DRUGS (5)
  1. BI-SIFROL TABLETS [Suspect]
     Indication: PARKINSON'S DISEASE
     Route: 048
     Dates: start: 20070502, end: 20070622
  2. MADOPAR (LEVODOPA_BENSERAZIDE HYDROCHLORIDE) [Concomitant]
     Indication: PARKINSON'S DISEASE
     Route: 048
  3. SYMMETREL [Concomitant]
     Indication: PARKINSON'S DISEASE
     Route: 048
  4. PURSENNID (SENNOSIDE) [Concomitant]
     Indication: CONSTIPATION
     Route: 048
  5. ARTANE [Concomitant]
     Indication: PARKINSON'S DISEASE
     Route: 048

REACTIONS (2)
  - SUDDEN ONSET OF SLEEP [None]
  - THERMAL BURN [None]
